FAERS Safety Report 12804621 (Version 1)
Quarter: 2016Q4

REPORT INFORMATION
  Report Type: Spontaneous
  Country: US (occurrence: US)
  Receive Date: 20161003
  Receipt Date: 20161003
  Transmission Date: 20170207
  Serious: Yes (Hospitalization, Other)
  Sender: FDA-Public Use
  Company Number: US-GLAXOSMITHKLINE-US2016143849

PATIENT
  Age: 70 Year
  Sex: Female

DRUGS (14)
  1. VENTOLIN HFA [Suspect]
     Active Substance: ALBUTEROL SULFATE
     Indication: CHRONIC OBSTRUCTIVE PULMONARY DISEASE
     Dosage: 2 PUFF(S), PRN
     Route: 055
  2. LOSARTAN. [Concomitant]
     Active Substance: LOSARTAN
  3. PANTOPRAZOLE [Concomitant]
     Active Substance: PANTOPRAZOLE SODIUM
  4. ADVAIR DISKUS [Suspect]
     Active Substance: FLUTICASONE PROPIONATE\SALMETEROL XINAFOATE
     Indication: CHRONIC OBSTRUCTIVE PULMONARY DISEASE
     Dosage: 1 PUFF(S), BID
     Route: 055
  5. SPIRIVA [Suspect]
     Active Substance: TIOTROPIUM BROMIDE MONOHYDRATE
     Indication: CHRONIC OBSTRUCTIVE PULMONARY DISEASE
     Dosage: UNK
  6. PREDNISONE. [Suspect]
     Active Substance: PREDNISONE
     Indication: PRODUCT USED FOR UNKNOWN INDICATION
     Dosage: UNK
  7. TRAMADOL. [Concomitant]
     Active Substance: TRAMADOL
  8. SIMVASTATIN. [Concomitant]
     Active Substance: SIMVASTATIN
  9. METOPROLOL. [Concomitant]
     Active Substance: METOPROLOL
  10. XANAX [Concomitant]
     Active Substance: ALPRAZOLAM
  11. GABAPENTIN. [Concomitant]
     Active Substance: GABAPENTIN
  12. LIDODERM [Concomitant]
     Active Substance: LIDOCAINE
  13. ADVAIR DISKUS [Suspect]
     Active Substance: FLUTICASONE PROPIONATE\SALMETEROL XINAFOATE
     Dosage: 1 PUFF(S), PRN
  14. SINGULAIR [Concomitant]
     Active Substance: MONTELUKAST SODIUM

REACTIONS (14)
  - Intentional product misuse [Unknown]
  - Oxygen saturation decreased [Unknown]
  - Expired product administered [Unknown]
  - Inability to afford medication [Unknown]
  - Headache [Unknown]
  - Cataract [Unknown]
  - Drug dose omission [Unknown]
  - Pseudomonas infection [Unknown]
  - Cataract operation [Unknown]
  - Corneal scar [Unknown]
  - Eye infection [Unknown]
  - Chronic obstructive pulmonary disease [Unknown]
  - Treatment noncompliance [Unknown]
  - Wheezing [Unknown]

NARRATIVE: CASE EVENT DATE: 201401
